FAERS Safety Report 4762442-4 (Version None)
Quarter: 2005Q3

REPORT INFORMATION
  Report Type: 
  Country: None (occurrence: None)
  Receive Date: 20050826
  Receipt Date: 20041019
  Transmission Date: 20060218
  Serious: Yes (Death, Other)
  Sender: FDA-Public Use
  Company Number: USA-2004-0017301

PATIENT
  Sex: Male

DRUGS (3)
  1. OXYCONTIN [Suspect]
     Dosage: INTRAVENOUS
     Route: 042
  2. COCAINE (COCAINE) [Suspect]
  3. ETHANOL (ETHANOL) [Suspect]

REACTIONS (2)
  - MULTIPLE DRUG OVERDOSE [None]
  - POLYSUBSTANCE ABUSE [None]
